FAERS Safety Report 14078533 (Version 1)
Quarter: 2017Q4

REPORT INFORMATION
  Report Type: Spontaneous
  Country: CA (occurrence: None)
  Receive Date: 20171012
  Receipt Date: 20171012
  Transmission Date: 20180321
  Serious: Yes (Death, Hospitalization)
  Sender: FDA-Public Use
  Company Number: None

PATIENT
  Age: 67 Year
  Sex: Male
  Weight: 59.3 kg

DRUGS (1)
  1. MEMANTINE HYDROCHLORIDE. [Suspect]
     Active Substance: MEMANTINE HYDROCHLORIDE
     Dates: end: 20170922

REACTIONS (5)
  - Oxygen consumption increased [None]
  - Pain [None]
  - Dyspnoea [None]
  - Asthenia [None]
  - Hyporesponsive to stimuli [None]

NARRATIVE: CASE EVENT DATE: 20170911
